FAERS Safety Report 20578849 (Version 1)
Quarter: 2022Q1

REPORT INFORMATION
  Report Type: Spontaneous
  Country: BE (occurrence: BE)
  Receive Date: 20220310
  Receipt Date: 20220310
  Transmission Date: 20220423
  Serious: Yes (Hospitalization, Other)
  Sender: FDA-Public Use
  Company Number: BE-DSJP-DSE-2022-107705

PATIENT
  Age: 66 Year
  Sex: Male

DRUGS (2)
  1. EDOXABAN [Suspect]
     Active Substance: EDOXABAN
     Indication: Superficial vein thrombosis
     Dosage: 60 MG, QD, STOPPED ONE WEEK AFTER HOSPITAL DISCHARGE
  2. EDOXABAN [Suspect]
     Active Substance: EDOXABAN
     Indication: Deep vein thrombosis
     Dosage: 60 MG, QD

REACTIONS (4)
  - Endocarditis noninfective [Recovered/Resolved]
  - Ischaemic stroke [Recovering/Resolving]
  - Prostate cancer metastatic [Recovering/Resolving]
  - Abnormal loss of weight [Unknown]
